FAERS Safety Report 18081043 (Version 1)
Quarter: 2020Q3

REPORT INFORMATION
  Report Type: Spontaneous
  Country: US (occurrence: US)
  Receive Date: 20200728
  Receipt Date: 20200728
  Transmission Date: 20201103
  Serious: Yes (Death, Hospitalization)
  Sender: FDA-Public Use
  Company Number: US-BAYER-2020-144847

PATIENT
  Age: 61 Year
  Sex: Male

DRUGS (3)
  1. LEVOTHYROXINE. [Concomitant]
     Active Substance: LEVOTHYROXINE
     Dosage: 137 ?G, OM
  2. ASPIRIN (CARDIO) [Suspect]
     Active Substance: ASPIRIN
     Dosage: 81 MG, QD
  3. NORVASC [Concomitant]
     Active Substance: AMLODIPINE BESYLATE
     Dosage: 5 MG, QD

REACTIONS (7)
  - Pulseless electrical activity [Fatal]
  - Shock haemorrhagic [None]
  - Leg amputation [None]
  - Post procedural haemorrhage [None]
  - Anti factor VIII antibody positive [None]
  - Muscle haemorrhage [None]
  - Contusion [None]
